FAERS Safety Report 24679237 (Version 1)
Quarter: 2024Q4

REPORT INFORMATION
  Report Type: Spontaneous
  Country: CN (occurrence: CN)
  Receive Date: 20241129
  Receipt Date: 20241129
  Transmission Date: 20250115
  Serious: Yes (Other)
  Sender: NOVARTIS
  Company Number: CN-002147023-NVSC2024CN227650

PATIENT
  Age: 16 Year
  Sex: Male
  Weight: 63.75 kg

DRUGS (13)
  1. CYCLOSPORINE [Suspect]
     Active Substance: CYCLOSPORINE
     Indication: Sepsis
     Dosage: 0.100 G, BID
     Route: 041
     Dates: start: 20241024, end: 20241031
  2. CYCLOSPORINE [Suspect]
     Active Substance: CYCLOSPORINE
     Indication: Bone marrow transplant rejection
     Dosage: 0.060 G, BID
     Route: 041
     Dates: start: 20241031, end: 20241104
  3. CYCLOSPORINE [Suspect]
     Active Substance: CYCLOSPORINE
     Dosage: 0.050 G, BID
     Route: 041
     Dates: start: 20241104, end: 20241109
  4. CYCLOSPORINE [Suspect]
     Active Substance: CYCLOSPORINE
     Dosage: UNK, DOSE REDUCED
     Route: 065
  5. VFEND [Suspect]
     Active Substance: VORICONAZOLE
     Indication: Sepsis
     Dosage: 200.000 MG, BID
     Route: 041
     Dates: start: 20241031, end: 20241107
  6. VFEND [Suspect]
     Active Substance: VORICONAZOLE
     Dosage: 160.000 MG, BID
     Route: 041
     Dates: start: 20241107, end: 20241109
  7. VFEND [Suspect]
     Active Substance: VORICONAZOLE
     Dosage: UNK,  DOSE REDUCED
     Route: 065
  8. AMPHOTERICIN B CHOLESTERYL SULFATE [Suspect]
     Active Substance: AMPHOTERICIN B CHOLESTERYL SULFATE
     Indication: Sepsis
     Dosage: 50.000 MG, QD
     Route: 041
     Dates: start: 20241102, end: 20241105
  9. AMPHOTERICIN B CHOLESTERYL SULFATE [Suspect]
     Active Substance: AMPHOTERICIN B CHOLESTERYL SULFATE
     Indication: Bone marrow transplant
     Dosage: UNK DOSE REDUCED
     Route: 065
  10. SULFAMETHOXAZOLE [Suspect]
     Active Substance: SULFAMETHOXAZOLE
     Indication: Sepsis
     Dosage: 2.000 DOSAGE FORM, BID
     Route: 048
     Dates: start: 20241024, end: 20241028
  11. SULFAMETHOXAZOLE [Suspect]
     Active Substance: SULFAMETHOXAZOLE
     Indication: Pneumocystis jirovecii pneumonia
     Dosage: 1.000 DOSAGE FORM, BID
     Route: 048
     Dates: start: 20241028, end: 20241106
  12. SULFAMETHOXAZOLE [Suspect]
     Active Substance: SULFAMETHOXAZOLE
     Dosage: 1.000 DOSAGE FORM, QD
     Route: 048
     Dates: start: 20241106, end: 20241109
  13. SULFAMETHOXAZOLE [Suspect]
     Active Substance: SULFAMETHOXAZOLE
     Dosage: UNK, DOSE REDUCED
     Route: 065

REACTIONS (1)
  - Renal impairment [Unknown]

NARRATIVE: CASE EVENT DATE: 20241108
